FAERS Safety Report 7218907-9 (Version None)
Quarter: 2011Q1

REPORT INFORMATION
  Report Type: 
  Country: None (occurrence: None)
  Receive Date: 20110110
  Receipt Date: 20110106
  Transmission Date: 20110831
  Serious: Yes (Death, Hospitalization)
  Sender: FDA-Public Use
  Company Number: US-BRISTOL-MYERS SQUIBB COMPANY-15429491

PATIENT
  Age: 58 Year
  Sex: Male

DRUGS (2)
  1. DASATINIB [Suspect]
     Indication: SARCOMA
     Dates: start: 20101104, end: 20101123
  2. DASATINIB [Suspect]
     Indication: CHORDOMA
     Dates: start: 20101104, end: 20101123

REACTIONS (6)
  - SEPSIS [None]
  - BACK PAIN [None]
  - PYELONEPHRITIS [None]
  - MENINGITIS [None]
  - ACUTE MYOCARDIAL INFARCTION [None]
  - PNEUMOCEPHALUS [None]
